FAERS Safety Report 23948905 (Version 1)
Quarter: 2024Q2

REPORT INFORMATION
  Report Type: Report from Study
  Country: CA (occurrence: CA)
  Receive Date: 20240607
  Receipt Date: 20240607
  Transmission Date: 20240715
  Serious: Yes (Hospitalization)
  Sender: FDA-Public Use
  Company Number: CA-JNJFOC-20240170136

PATIENT
  Age: 38 Year
  Sex: Female

DRUGS (5)
  1. REMICADE [Suspect]
     Active Substance: INFLIXIMAB
     Indication: Crohn^s disease
     Dosage: EXPIRY: JUNE-26, AUG-26, SEP26
     Route: 041
     Dates: start: 20141104
  2. ELAVIL [Concomitant]
     Active Substance: AMITRIPTYLINE HYDROCHLORIDE
     Dosage: HS
  3. PROZAC [Concomitant]
     Active Substance: FLUOXETINE HYDROCHLORIDE
  4. VALIUM [Concomitant]
     Active Substance: DIAZEPAM
  5. ZOLPIDEM TARTRATE [Concomitant]
     Active Substance: ZOLPIDEM TARTRATE

REACTIONS (12)
  - Abdominal pain [Recovered/Resolved]
  - Constipation [Recovered/Resolved]
  - Adverse event [Unknown]
  - COVID-19 [Unknown]
  - Fatigue [Unknown]
  - Gastrointestinal disorder [Unknown]
  - Pyrexia [Unknown]
  - Pain [Unknown]
  - Off label use [Unknown]
  - Diarrhoea [Unknown]
  - Vomiting [Unknown]
  - Influenza [Recovered/Resolved]
